FAERS Safety Report 5276434-2 (Version None)
Quarter: 2007Q1

REPORT INFORMATION
  Report Type: 
  Country: None (occurrence: None)
  Receive Date: 20061213
  Receipt Date: 20040109
  Transmission Date: 20070707
  Serious: No
  Sender: FDA-Public Use
  Company Number: 2004UW00045

PATIENT
  Age: 38 Year
  Sex: Male

DRUGS (5)
  1. SEROQUEL [Suspect]
     Dosage: 300 MG DAILY PO
     Route: 048
     Dates: start: 20030901, end: 20030901
  2. SEROQUEL [Suspect]
     Dosage: 000 MG PO
     Route: 048
  3. SEROQUEL [Suspect]
     Dosage: 800 MG PO
     Route: 048
     Dates: start: 20030121
  4. LITHIUM CARBONATE [Concomitant]
  5. PAMELOR [Concomitant]

REACTIONS (1)
  - TARDIVE DYSKINESIA [None]
